FAERS Safety Report 9017542 (Version 2)
Quarter: 2013Q2

REPORT INFORMATION
  Report Type: Report from Study
  Country: US (occurrence: US)
  Receive Date: 20130117
  Receipt Date: 20130405
  Transmission Date: 20140414
  Serious: Yes (Hospitalization)
  Sender: FDA-Public Use
  Company Number: US-PFIZER INC-2013015317

PATIENT
  Age: 76 Year
  Sex: Male
  Weight: 75.3 kg

DRUGS (20)
  1. PF-04449913 [Suspect]
     Indication: MYELODYSPLASTIC SYNDROME
     Dosage: 200 MG, 1X/DAY CONTINUOUS
     Route: 048
     Dates: start: 20121031
  2. CYTARABINE [Suspect]
     Indication: MYELODYSPLASTIC SYNDROME
     Dosage: 20 MG, TWICE DAILY ON DAYS 1-10 OF EACH 28-DAY CYCLE
     Route: 058
     Dates: start: 20121031
  3. BENADRYL [Concomitant]
     Indication: PROPHYLAXIS
     Dosage: 25 MG, AS NEEDED
     Route: 048
     Dates: start: 20121031
  4. TYLENOL [Concomitant]
     Indication: PROPHYLAXIS
     Dosage: 650 MG, AS NEEDED
     Dates: start: 20121031, end: 20121031
  5. TYLENOL [Concomitant]
     Dosage: 650 MG, AS NEEDED
     Route: 048
     Dates: start: 20121109
  6. SODIUM CHLORIDE [Concomitant]
     Indication: HYPOTENSION
     Dosage: 1000 ML, ONCE
     Route: 042
     Dates: start: 20121212, end: 20121212
  7. NORVASC [Concomitant]
     Indication: HYPERTENSION
     Dosage: 5 MG, DAILY
     Route: 048
     Dates: start: 201102
  8. AVODART [Concomitant]
     Indication: BENIGN PROSTATIC HYPERPLASIA
     Dosage: 0.5 MG, DAILY
     Route: 048
     Dates: start: 201103
  9. CLONIDINE [Concomitant]
     Indication: HYPERTENSION
     Dosage: 0.3-0.4 MG, DAILY
     Route: 048
     Dates: start: 200603
  10. COLCHICINE [Concomitant]
     Indication: GOUT
     Dosage: 0.6 MG, DAILY
     Route: 048
     Dates: start: 20121026
  11. ENALAPRIL [Concomitant]
     Indication: HYPERTENSION
     Dosage: 20 MG, 2X/DAY
     Route: 048
     Dates: start: 200301
  12. PEPCID [Concomitant]
     Indication: GASTROOESOPHAGEAL REFLUX PROPHYLAXIS
     Dosage: 20 MG, DAILY
     Route: 048
     Dates: start: 20121026
  13. FISH OIL [Concomitant]
     Indication: PROPHYLAXIS
     Dosage: 2000-3000 IU,DAILY
     Route: 048
     Dates: start: 201203
  14. FISH OIL [Concomitant]
     Indication: HYPERTENSION
  15. FISH OIL [Concomitant]
     Indication: SUPPLEMENTATION THERAPY
  16. GLUCOSAMINE HYDROCHLORIDE/CHONDROITIN SULFATE [Concomitant]
     Indication: PROPHYLAXIS
     Dosage: 1500, CAPSULE, 2X/DAY
     Route: 048
     Dates: start: 200606
  17. PREDNISONE [Concomitant]
     Indication: GOUT
     Dosage: 10 MG, DAILY
     Route: 048
     Dates: start: 20121026
  18. WELCHOL [Concomitant]
     Indication: IRRITABLE BOWEL SYNDROME
     Dosage: 3.75 MG, AS NEEDED
     Route: 048
     Dates: start: 199502
  19. ALLOPURINOL [Concomitant]
     Indication: GOUT
     Dosage: 200 MG, DAILY
     Route: 048
     Dates: start: 197507
  20. CALCIUM WITH VITAMIN D [Concomitant]
     Indication: VITAMIN SUPPLEMENTATION
     Dosage: 1 TABLET, 1X/DAY
     Route: 048
     Dates: start: 201105

REACTIONS (1)
  - Autonomic nervous system imbalance [Recovered/Resolved]
